FAERS Safety Report 24287971 (Version 3)
Quarter: 2024Q4

REPORT INFORMATION
  Report Type: Spontaneous
  Country: US (occurrence: US)
  Receive Date: 20240905
  Receipt Date: 20241104
  Transmission Date: 20250115
  Serious: No
  Sender: KARYOPHARM THERAPEUTICS
  Company Number: US-KARYOPHARM-2024KPT001500

PATIENT

DRUGS (9)
  1. XPOVIO [Suspect]
     Active Substance: SELINEXOR
     Indication: Plasma cell myeloma in remission
     Dosage: 40 MG, 2X/WEEK
     Route: 048
     Dates: start: 20240826, end: 2024
  2. ACYCLOVIR [Concomitant]
     Active Substance: ACYCLOVIR
  3. METFORMIN [Concomitant]
     Active Substance: METFORMIN HYDROCHLORIDE
  4. LOVASTATIN [Concomitant]
     Active Substance: LOVASTATIN
  5. ASPIRIN [Concomitant]
     Active Substance: ASPIRIN
  6. ONDANSETRON [Concomitant]
     Active Substance: ONDANSETRON
  7. DEXAMETHASONE [Concomitant]
     Active Substance: DEXAMETHASONE
  8. LOPERAMIDE [Concomitant]
     Active Substance: LOPERAMIDE
  9. ZOFRAN [Concomitant]
     Active Substance: ONDANSETRON HYDROCHLORIDE

REACTIONS (7)
  - Pain in extremity [Recovering/Resolving]
  - Hypoaesthesia [Unknown]
  - Blood pressure decreased [Recovering/Resolving]
  - Dizziness [Unknown]
  - Diarrhoea [Unknown]
  - Decreased appetite [Not Recovered/Not Resolved]
  - Confusional state [Unknown]

NARRATIVE: CASE EVENT DATE: 20240101
